FAERS Safety Report 11064904 (Version 2)
Quarter: 2015Q2

REPORT INFORMATION
  Report Type: Spontaneous
  Country: US (occurrence: US)
  Receive Date: 20150424
  Receipt Date: 20150524
  Transmission Date: 20150821
  Serious: No
  Sender: FDA-Public Use
  Company Number: US-JNJFOC-20130904622

PATIENT
  Sex: Female

DRUGS (2)
  1. METHYLPHENIATE HYDROCHLORIDE (WATSON) [Suspect]
     Active Substance: METHYLPHENIDATE HYDROCHLORIDE
     Indication: ATTENTION DEFICIT/HYPERACTIVITY DISORDER
     Dosage: ADMINISTERED THE MEDICATION AT 6:30 AM
     Route: 048
     Dates: start: 2011
  2. ZOLOFT [Concomitant]
     Active Substance: SERTRALINE HYDROCHLORIDE
     Route: 048
     Dates: start: 2012

REACTIONS (1)
  - Drug effect decreased [Not Recovered/Not Resolved]
